FAERS Safety Report 6317321-8 (Version None)
Quarter: 2009Q3

REPORT INFORMATION
  Report Type: 
  Country: None (occurrence: None)
  Receive Date: 20090821
  Receipt Date: 20090813
  Transmission Date: 20100115
  Serious: Yes (Death)
  Sender: FDA-Public Use
  Company Number: US-BIOGENIDEC-2009BI003072

PATIENT
  Sex: Female

DRUGS (2)
  1. AVONEX [Suspect]
     Indication: MULTIPLE SCLEROSIS
     Route: 030
     Dates: start: 20000815
  2. AVONEX [Suspect]
     Route: 030
     Dates: start: 20070202, end: 20090101

REACTIONS (3)
  - APHASIA [None]
  - HYPOPHAGIA [None]
  - MULTIPLE SCLEROSIS [None]
